FAERS Safety Report 8495694-8 (Version None)
Quarter: 2012Q3

REPORT INFORMATION
  Report Type: 
  Country: None (occurrence: None)
  Receive Date: 20120709
  Receipt Date: 20120705
  Transmission Date: 20120928
  Serious: No
  Sender: FDA-Public Use
  Company Number: US-PFIZER INC-2012161905

PATIENT
  Sex: Female
  Weight: 72 kg

DRUGS (5)
  1. ASPIRIN [Concomitant]
     Indication: CARDIOVASCULAR EVENT PROPHYLAXIS
     Dosage: 81 MG, DAILY (IN MORNING)
  2. ACCUPRIL [Suspect]
     Dosage: 40 MG, UNK
  3. ACCUPRIL [Suspect]
     Dosage: UNK
     Dates: end: 20120101
  4. ACCUPRIL [Suspect]
     Indication: HYPERTENSION
     Dosage: 20 MG, UNK
  5. ACETAMINOPHEN [Concomitant]
     Dosage: 25 MG, UNK
     Dates: start: 20120123

REACTIONS (2)
  - COUGH [None]
  - DYSPNOEA [None]
